FAERS Safety Report 8525982-8 (Version None)
Quarter: 2012Q3

REPORT INFORMATION
  Report Type: 
  Country: None (occurrence: None)
  Receive Date: 20120720
  Receipt Date: 20111019
  Transmission Date: 20120928
  Serious: Yes (Hospitalization)
  Sender: FDA-Public Use
  Company Number: PHHY2010US85860

PATIENT
  Sex: Female
  Weight: 59.19 kg

DRUGS (12)
  1. VIDAZA [Concomitant]
     Dosage: 100 MG, UNK
     Route: 058
  2. NEUPOGEN [Concomitant]
     Dosage: 1 DF, QW
  3. XANAX [Concomitant]
  4. PREDNISONE [Concomitant]
     Dosage: 20 MG, UNK
  5. FOLIC ACID [Concomitant]
     Dosage: 1 MG, UNK
     Route: 048
  6. ACETYLSALICYLIC ACID SRT [Concomitant]
  7. VANCOMYCIN [Concomitant]
     Dosage: 500 MG, UNK
  8. EXJADE [Suspect]
     Dosage: 500 MG,
     Route: 048
     Dates: start: 20101003
  9. CARAFATE [Concomitant]
     Route: 048
  10. BACTRIM [Concomitant]
  11. EXJADE [Suspect]
     Indication: MYELODYSPLASTIC SYNDROME
     Dosage: 500 MG, DAILY
     Route: 048
     Dates: start: 20100927
  12. REVLIMID [Concomitant]
     Dosage: 10 MG, UNK

REACTIONS (3)
  - CLOSTRIDIAL INFECTION [None]
  - MALAISE [None]
  - VIRAL INFECTION [None]
